FAERS Safety Report 6836947-6 (Version None)
Quarter: 2010Q3

REPORT INFORMATION
  Report Type: 
  Country: None (occurrence: None)
  Receive Date: 20100713
  Receipt Date: 20070426
  Transmission Date: 20110219
  Serious: Yes (Other)
  Sender: FDA-Public Use
  Company Number: US-PFIZER INC-2007034963

PATIENT
  Age: 49 Year
  Sex: Female

DRUGS (5)
  1. CHANTIX [Suspect]
     Indication: SMOKING CESSATION THERAPY
     Dates: start: 20070420, end: 20070420
  2. CHANTIX [Suspect]
  3. ZITHROMAX [Concomitant]
     Indication: SINUSITIS
     Dates: start: 20070419, end: 20070421
  4. NEXIUM [Concomitant]
  5. EFFEXOR [Concomitant]

REACTIONS (3)
  - BLOOD PRESSURE INCREASED [None]
  - ERYTHEMA [None]
  - HYPERSENSITIVITY [None]
